FAERS Safety Report 5986631-6 (Version None)
Quarter: 2008Q4

REPORT INFORMATION
  Report Type: 
  Country: None (occurrence: None)
  Receive Date: 20081203
  Receipt Date: 20081119
  Transmission Date: 20090506
  Serious: Yes (Other)
  Sender: FDA-Public Use
  Company Number: DSU-2008-02020

PATIENT
  Sex: Female
  Weight: 136 kg

DRUGS (3)
  1. OLMESARTAN MEDOXOMIL [Suspect]
     Indication: HYPERTENSION
     Dosage: (20 MG), PER ORAL
     Route: 048
  2. MONOPLUS (HYDROCHLOROTHIAZIDE, PFOSINOPRIL) (HYDROCHLOROTHIAZIDE, FOSI [Concomitant]
  3. DIABEX (METFORMIN HYDROCHLORIDE) (TABLET) (METFORMIN HYDROCHLORIDE) [Concomitant]

REACTIONS (3)
  - HYPONATRAEMIA [None]
  - RENAL FUNCTION TEST ABNORMAL [None]
  - VOMITING [None]
